FAERS Safety Report 5006482-9 (Version None)
Quarter: 2006Q2

REPORT INFORMATION
  Report Type: 
  Country: None (occurrence: None)
  Receive Date: 20060519
  Receipt Date: 20060505
  Transmission Date: 20061013
  Serious: Yes (Other)
  Sender: FDA-Public Use
  Company Number: CA-AMGEN-US178658

PATIENT
  Age: 30 Year
  Sex: Female
  Weight: 47.7 kg

DRUGS (2)
  1. ENBREL [Suspect]
     Indication: RHEUMATOID ARTHRITIS
     Route: 058
     Dates: start: 20040214
  2. CELEBREX [Concomitant]
     Route: 048

REACTIONS (1)
  - PULMONARY HYPERTENSION [None]
